FAERS Safety Report 8798323 (Version 3)
Quarter: 2013Q4

REPORT INFORMATION
  Report Type: Report from Study
  Country: RU (occurrence: RU)
  Receive Date: 20120920
  Receipt Date: 20131023
  Transmission Date: 20140711
  Serious: Yes (Other)
  Sender: FDA-Public Use
  Company Number: RU-ROCHE-1127059

PATIENT
  Age: 44 Year
  Sex: Female
  Weight: 45 kg

DRUGS (10)
  1. BEVACIZUMAB [Suspect]
     Indication: RECTAL CANCER METASTATIC
     Route: 042
     Dates: start: 20120511, end: 20120830
  2. BEVACIZUMAB [Suspect]
     Route: 042
     Dates: start: 20120830
  3. BEVACIZUMAB [Suspect]
     Route: 065
  4. CAPECITABINE [Suspect]
     Indication: RECTAL CANCER METASTATIC
     Dosage: FOR 1-14 DAYS
     Route: 048
     Dates: start: 20120511, end: 20120830
  5. CAPECITABINE [Suspect]
     Dosage: FOR 1-14 DAYS
     Route: 048
     Dates: start: 20130816
  6. FLUOROURACIL [Concomitant]
     Indication: RECTAL CANCER METASTATIC
     Route: 040
     Dates: start: 20120830
  7. FLUOROURACIL [Concomitant]
     Dosage: 22 HOURS IN 1-2 DAYS
     Route: 042
     Dates: end: 20130423
  8. LEUCOVORIN [Concomitant]
     Indication: RECTAL CANCER METASTATIC
     Dosage: 2 HOURS IN 1-2 DAYS
     Route: 042
     Dates: start: 20120830, end: 20130423
  9. IRINOTECAN [Concomitant]
     Indication: RECTAL CANCER METASTATIC
     Dosage: 90 MIN INFUSION
     Route: 042
     Dates: start: 20120830, end: 20130423
  10. IRINOTECAN [Concomitant]
     Dosage: 2 HRS INFUSION 1 DAY
     Route: 042
     Dates: start: 20130816

REACTIONS (1)
  - Disease progression [Not Recovered/Not Resolved]
